FAERS Safety Report 19568762 (Version 1)
Quarter: 2021Q3

REPORT INFORMATION
  Report Type: Report from Study
  Country: DE (occurrence: DE)
  Receive Date: 20210714
  Receipt Date: 20210714
  Transmission Date: 20211014
  Serious: Yes (Death, Life-Threatening, Hospitalization)
  Sender: FDA-Public Use
  Company Number: DE-GILEAD-2021-0529365

PATIENT
  Age: 54 Year
  Sex: Female
  Weight: 53 kg

DRUGS (9)
  1. SACITUZUMAB GOVITECAN. [Suspect]
     Active Substance: SACITUZUMAB GOVITECAN
     Dosage: 7.5 MG/KG (397.5 MG) DAYS 1 AND 8 OF 21?DAYS CYCLE
     Route: 042
     Dates: start: 20210112, end: 20210112
  2. DURAGESIC [Concomitant]
     Active Substance: FENTANYL
     Indication: PAIN
     Dosage: 2 MG EVERY 3 DAYS
     Route: 065
     Dates: start: 20200729, end: 20210217
  3. SAB SIMPLEX [DIMETICONE] [Concomitant]
     Indication: FLATULENCE
     Dosage: 39 DRP, QD
     Route: 048
     Dates: start: 20210108, end: 20210217
  4. PANTOPRAZOLE AMNEAL [Concomitant]
     Indication: PROPHYLAXIS
     Dosage: 40 MG, QD (1?0?0?0)
     Route: 048
     Dates: start: 20201114, end: 20210217
  5. OXYCODONE [Concomitant]
     Active Substance: OXYCODONE
  6. SACITUZUMAB GOVITECAN. [Suspect]
     Active Substance: SACITUZUMAB GOVITECAN
     Indication: BREAST CANCER METASTATIC
     Dosage: 10 MG/KG DAYS 1 AND 8 OF 21?DAYS CYCLE
     Route: 042
     Dates: start: 20200730, end: 20200730
  7. MOVICOL PLAIN [Concomitant]
     Active Substance: POLYETHYLENE GLYCOL 3350\POTASSIUM CHLORIDE\SODIUM BICARBONATE\SODIUM CHLORIDE
  8. TORASEMIDE [Concomitant]
     Active Substance: TORSEMIDE
     Indication: DIURETIC THERAPY
     Dosage: 5 MG, QD (2?0?0?0)
     Route: 065
     Dates: start: 20210121, end: 20210217
  9. SACITUZUMAB GOVITECAN. [Suspect]
     Active Substance: SACITUZUMAB GOVITECAN
     Dosage: 7.5 MG/KG DAYS 1 AND 8 OF 21?DAYS CYCLE
     Route: 042
     Dates: start: 20200819, end: 20200819

REACTIONS (2)
  - Hepatorenal syndrome [Fatal]
  - Hepatic failure [Fatal]

NARRATIVE: CASE EVENT DATE: 20210205
